FAERS Safety Report 15770863 (Version 1)
Quarter: 2018Q4

REPORT INFORMATION
  Report Type: Report from Study
  Country: CA (occurrence: CA)
  Receive Date: 20181228
  Receipt Date: 20181228
  Transmission Date: 20190205
  Serious: Yes (Other)
  Sender: FDA-Public Use
  Company Number: PHHY2018CA197068

PATIENT

DRUGS (3)
  1. ENTRESTO [Suspect]
     Active Substance: SACUBITRIL\VALSARTAN
     Dosage: 2 DF (24 MG SACUBITRIL/ 26 MG VALSARTAN), UNK
     Route: 065
     Dates: start: 20170613, end: 20171013
  2. ENTRESTO [Suspect]
     Active Substance: SACUBITRIL\VALSARTAN
     Indication: CARDIAC FAILURE
     Dosage: 2 DF (24 MG SACUBITRIL/ 26 MG VALSARTAN), UNK
     Route: 065
     Dates: start: 20160914, end: 20170612
  3. ENTRESTO [Suspect]
     Active Substance: SACUBITRIL\VALSARTAN
     Dosage: 2 DF (24 MG SACUBITRIL/ 26 MG VALSARTAN), UNK
     Route: 065
     Dates: start: 20171101

REACTIONS (2)
  - Syncope [Recovered/Resolved]
  - Hypotension [Recovered/Resolved]

NARRATIVE: CASE EVENT DATE: 20180507
